FAERS Safety Report 5601040-7 (Version None)
Quarter: 2008Q1

REPORT INFORMATION
  Report Type: 
  Country: None (occurrence: None)
  Receive Date: 20080124
  Receipt Date: 20080116
  Transmission Date: 20080703
  Serious: Yes (Other)
  Sender: FDA-Public Use
  Company Number: US-ROCHE-460902

PATIENT
  Age: 61 Year
  Sex: Female

DRUGS (11)
  1. PEGASYS [Suspect]
     Indication: HEPATITIS C VIRUS
     Route: 058
     Dates: start: 20070629
  2. PEGASYS [Suspect]
     Route: 058
     Dates: start: 20051218, end: 20060927
  3. PEGASYS [Suspect]
     Dosage: STRENGTH REPORTED AS 180MCG/0.5ML
     Route: 058
     Dates: start: 20051102, end: 20051217
  4. RIBAVIRIN [Suspect]
     Indication: HEPATITIS C VIRUS
     Route: 048
     Dates: start: 20070629
  5. RIBAVIRIN [Suspect]
     Route: 048
     Dates: start: 20051218, end: 20060927
  6. RIBAVIRIN [Suspect]
     Route: 048
     Dates: start: 20051102, end: 20051217
  7. COPEGUS [Suspect]
     Route: 065
     Dates: start: 20070629
  8. SEROQUEL [Suspect]
     Indication: DEPRESSION
     Route: 065
  9. ESTROGEN [Concomitant]
     Dates: start: 19970101
  10. WELLBUTRIN [Concomitant]
     Indication: DEPRESSION
  11. ASPIRIN [Concomitant]
     Dosage: THE PATIENT TOOK ^A LITTLE PIECE^ EVERY DAY, THEN A ^WHOLE ASPIRIN^ ONCE DAILY SINCE EVENT OF TIA.

REACTIONS (17)
  - ANOREXIA [None]
  - BLOOD PRESSURE INCREASED [None]
  - CEREBRAL ARTERY STENOSIS [None]
  - CONJUNCTIVITIS [None]
  - DEAFNESS [None]
  - DEHYDRATION [None]
  - FATIGUE [None]
  - HEPATITIS C [None]
  - HERPES ZOSTER [None]
  - HYPERSOMNIA [None]
  - NAUSEA [None]
  - RED BLOOD CELL COUNT DECREASED [None]
  - TRANSIENT ISCHAEMIC ATTACK [None]
  - TREMOR [None]
  - VOMITING [None]
  - WEIGHT INCREASED [None]
  - WHITE BLOOD CELL COUNT DECREASED [None]
